FAERS Safety Report 9493586 (Version 2)
Quarter: 2013Q3

REPORT INFORMATION
  Report Type: Spontaneous
  Country: US (occurrence: US)
  Receive Date: 20130902
  Receipt Date: 20130918
  Transmission Date: 20140515
  Serious: No
  Sender: FDA-Public Use
  Company Number: US-PFIZER INC-2013250352

PATIENT
  Age: 69 Year
  Sex: Male
  Weight: 99.77 kg

DRUGS (4)
  1. XELJANZ [Suspect]
     Indication: RHEUMATOID ARTHRITIS
     Dosage: 5 MG, 2X/DAY
     Route: 048
     Dates: start: 20130722, end: 201307
  2. XELJANZ [Suspect]
     Dosage: 5 MG, 1X/DAY
     Route: 048
     Dates: start: 201307, end: 20130726
  3. PREDNISONE [Concomitant]
     Indication: RHEUMATOID LUNG
     Dosage: 5 MG, 1X/DAY
  4. HUMALOG [Concomitant]
     Indication: TYPE 2 DIABETES MELLITUS
     Dosage: 14 IU, 1X/DAY

REACTIONS (4)
  - Nausea [Unknown]
  - Abdominal distension [Unknown]
  - Liver function test abnormal [Not Recovered/Not Resolved]
  - Product label issue [Unknown]
